FAERS Safety Report 24653673 (Version 4)
Quarter: 2024Q4

REPORT INFORMATION
  Report Type: Spontaneous
  Country: GB (occurrence: GB)
  Receive Date: 20241122
  Receipt Date: 20241231
  Transmission Date: 20250115
  Serious: Yes (Other)
  Sender: PFIZER
  Company Number: GB-PFIZER INC-202400300931

PATIENT
  Age: 58 Year
  Sex: Female
  Weight: 62 kg

DRUGS (5)
  1. ESTRING [Suspect]
     Active Substance: ESTRADIOL
     Indication: Genitourinary syndrome of menopause
     Dosage: 7.5 UG, PER 24 HOURS (CONTINUOUS RELEASE)
     Route: 067
     Dates: start: 20240805, end: 20240910
  2. ESTRADIOL [Concomitant]
     Active Substance: ESTRADIOL
     Indication: Menopause
     Dosage: 4 PUMPS
  3. PROGESTERONE [Concomitant]
     Active Substance: PROGESTERONE
     Indication: Menopause
     Dosage: 200 MG
  4. ESTRIOL [Concomitant]
     Active Substance: ESTRIOL
     Indication: Female genital mutilation
     Dosage: UNK, NOCTE EXTERNALLY
     Route: 061
  5. SOLIFENACIN [Concomitant]
     Active Substance: SOLIFENACIN
     Indication: Pollakiuria
     Dosage: 10 MG, 1X/DAY, NOCTE

REACTIONS (1)
  - Drug ineffective [Unknown]

NARRATIVE: CASE EVENT DATE: 20240805
